FAERS Safety Report 9458749 (Version 3)
Quarter: 2013Q4

REPORT INFORMATION
  Report Type: Report from Study
  Country: JP (occurrence: JP)
  Receive Date: 20130814
  Receipt Date: 20131231
  Transmission Date: 20140711
  Serious: Yes (Death)
  Sender: FDA-Public Use
  Company Number: JP-CELGENEUS-087-50794-13081472

PATIENT
  Age: 88 Year
  Sex: Male
  Weight: 56 kg

DRUGS (7)
  1. VIDAZA [Suspect]
     Indication: MYELODYSPLASTIC SYNDROME
     Dosage: 62.5 MILLIGRAM/SQ. METER
     Route: 041
     Dates: start: 20121227, end: 20130102
  2. VIDAZA [Suspect]
     Dosage: 62.5 MILLIGRAM/SQ. METER
     Route: 041
     Dates: start: 20130124, end: 20130128
  3. GENINAX [Concomitant]
     Indication: PRODUCT USED FOR UNKNOWN INDICATION
     Route: 065
     Dates: start: 20121226, end: 20130129
  4. VFEND [Concomitant]
     Indication: PRODUCT USED FOR UNKNOWN INDICATION
     Route: 065
     Dates: start: 20121226, end: 20130129
  5. MICARDIS [Concomitant]
     Indication: PRODUCT USED FOR UNKNOWN INDICATION
     Route: 065
     Dates: end: 20130129
  6. KYTRIL [Concomitant]
     Indication: PRODUCT USED FOR UNKNOWN INDICATION
     Route: 065
     Dates: start: 20121227, end: 20130128
  7. NEUTROGIN [Concomitant]
     Indication: PRODUCT USED FOR UNKNOWN INDICATION
     Route: 065
     Dates: start: 20130110, end: 20130129

REACTIONS (3)
  - Septic shock [Fatal]
  - Febrile neutropenia [Fatal]
  - Blood creatinine increased [Not Recovered/Not Resolved]
